FAERS Safety Report 4754145-7 (Version None)
Quarter: 2005Q3

REPORT INFORMATION
  Report Type: 
  Country: None (occurrence: None)
  Receive Date: 20050826
  Receipt Date: 20020128
  Transmission Date: 20060218
  Serious: Yes (Hospitalization)
  Sender: FDA-Public Use
  Company Number: JP-ABBOTT-05P-087-0306555-00

PATIENT
  Age: 51 Year
  Sex: Female

DRUGS (10)
  1. ERYTHROCIN [Suspect]
     Indication: PNEUMONIA PRIMARY ATYPICAL
     Dates: start: 20011227, end: 20020110
  2. ERYTHROCIN [Suspect]
     Indication: MYOCARDITIS
  3. PANIPENEM-BETAMIPRON [Suspect]
     Indication: PNEUMONIA PRIMARY ATYPICAL
     Dates: start: 20011227, end: 20020111
  4. PANIPENEM-BETAMIPRON [Suspect]
     Indication: MYOCARDITIS
  5. RIFAMPICIN [Suspect]
     Indication: PNEUMONIA PRIMARY ATYPICAL
     Route: 048
     Dates: start: 20011227, end: 20020116
  6. RIFAMPICIN [Suspect]
     Indication: MYOCARDITIS
  7. LISINOPRIL [Suspect]
     Indication: MYOCARDITIS
     Dates: start: 20011229, end: 20020116
  8. LISINOPRIL [Suspect]
     Indication: CARDIAC FAILURE
  9. FAMOTIDINE [Suspect]
     Indication: GASTRIC ULCER
     Dates: start: 20011228, end: 20020104
  10. FAMOTIDINE [Suspect]
     Route: 048
     Dates: start: 20020104, end: 20020116

REACTIONS (6)
  - BONE MARROW DEPRESSION [None]
  - EOSINOPHIL COUNT INCREASED [None]
  - GRANULOCYTOPENIA [None]
  - HYPERSENSITIVITY [None]
  - PLATELET COUNT DECREASED [None]
  - WHITE BLOOD CELL COUNT DECREASED [None]
